FAERS Safety Report 19460539 (Version 1)
Quarter: 2021Q2

REPORT INFORMATION
  Report Type: Spontaneous
  Country: CA (occurrence: CA)
  Receive Date: 20210625
  Receipt Date: 20210625
  Transmission Date: 20210717
  Serious: Yes (Other)
  Sender: FDA-Public Use
  Company Number: CA-CELLTRION INC.-2019CA026369

PATIENT

DRUGS (9)
  1. INFLECTRA [Suspect]
     Active Substance: INFLIXIMAB-DYYB
     Dosage: 10 MG/KG, AT EVERY 4 WEEKS
     Route: 042
     Dates: start: 20200406, end: 20200406
  2. INFLECTRA [Suspect]
     Active Substance: INFLIXIMAB-DYYB
     Dosage: 10 MG/KG, AT WEEK 0, 2, 6
     Route: 042
     Dates: start: 20191210, end: 20191210
  3. INFLECTRA [Suspect]
     Active Substance: INFLIXIMAB-DYYB
     Dosage: 10 MG/KG, AT EVERY 4 WEEKS
     Route: 042
     Dates: start: 20200307, end: 20200307
  4. INFLECTRA [Suspect]
     Active Substance: INFLIXIMAB-DYYB
     Dosage: 10 MG/KG, AT EVERY 4 WEEKS
     Route: 042
     Dates: start: 20210205, end: 20210205
  5. INFLECTRA [Suspect]
     Active Substance: INFLIXIMAB-DYYB
     Dosage: 10 MG/KG, AT EVERY 4 WEEKS
     Route: 042
     Dates: start: 20200406, end: 20200406
  6. INFLECTRA [Suspect]
     Active Substance: INFLIXIMAB-DYYB
     Indication: CROHN^S DISEASE
     Dosage: 10 MG/KG, AT WEEK 0, 2, 6
     Route: 042
     Dates: start: 20191029, end: 20191029
  7. INFLECTRA [Suspect]
     Active Substance: INFLIXIMAB-DYYB
     Dosage: 10 MG/KG, AT EVERY 4 WEEKS
     Route: 042
     Dates: start: 20201119, end: 20201119
  8. INFLECTRA [Suspect]
     Active Substance: INFLIXIMAB-DYYB
     Dosage: 10 MG/KG, AT EVERY 4 WEEKS
     Route: 042
     Dates: start: 20210610
  9. INFLECTRA [Suspect]
     Active Substance: INFLIXIMAB-DYYB
     Dosage: 700 MG (10 MG/KG), AT EVERY 4 WEEKS
     Route: 042
     Dates: start: 20200204, end: 20200204

REACTIONS (6)
  - Intentional product use issue [Unknown]
  - Off label use [Unknown]
  - Dizziness [Recovered/Resolved]
  - Drug level above therapeutic [Unknown]
  - Inappropriate schedule of product administration [Unknown]
  - Weight increased [Not Recovered/Not Resolved]

NARRATIVE: CASE EVENT DATE: 20210205
